FAERS Safety Report 24835802 (Version 3)
Quarter: 2025Q1

REPORT INFORMATION
  Report Type: Spontaneous
  Country: US (occurrence: US)
  Receive Date: 20250113
  Receipt Date: 20250319
  Transmission Date: 20250409
  Serious: No
  Sender: ELI LILLY AND COMPANY
  Company Number: US-ELI_LILLY_AND_COMPANY-US202501002353

PATIENT
  Age: 77 Year
  Sex: Male
  Weight: 93 kg

DRUGS (1)
  1. KISUNLA [Suspect]
     Active Substance: DONANEMAB-AZBT
     Indication: Dementia Alzheimer^s type
     Route: 042
     Dates: start: 20241028, end: 20241028

REACTIONS (1)
  - Amyloid related imaging abnormality-microhaemorrhages and haemosiderin deposits [Not Recovered/Not Resolved]

NARRATIVE: CASE EVENT DATE: 20241124
